FAERS Safety Report 9069436 (Version 1)
Quarter: 2013Q1

REPORT INFORMATION
  Report Type: Spontaneous
  Country: CN (occurrence: CN)
  Receive Date: 20130215
  Receipt Date: 20130215
  Transmission Date: 20140127
  Serious: Yes (Other)
  Sender: FDA-Public Use
  Company Number: CN-JNJFOC-20130203975

PATIENT
  Age: 80 Year
  Sex: Female

DRUGS (3)
  1. IMODIUM [Suspect]
     Indication: SHORT-BOWEL SYNDROME
     Route: 048
     Dates: start: 20121010
  2. AZINTAMIDE [Suspect]
     Indication: GASTRIC DISORDER
     Dosage: ENTERIC-COATED
     Route: 065
  3. UNKNOWN MEDICATION [Suspect]
     Indication: GASTRIC DISORDER
     Route: 065

REACTIONS (2)
  - Blood pressure decreased [Recovering/Resolving]
  - Palpitations [Recovering/Resolving]
